FAERS Safety Report 16387348 (Version 1)
Quarter: 2019Q2

REPORT INFORMATION
  Report Type: Spontaneous
  Country: EG (occurrence: EG)
  Receive Date: 20190604
  Receipt Date: 20190604
  Transmission Date: 20190711
  Serious: Yes (Other)
  Sender: FDA-Public Use
  Company Number: EG-HIKMA PHARMACEUTICALS USA INC.-EG-H14001-19-03692

PATIENT
  Age: 68 Year
  Sex: Female

DRUGS (2)
  1. CARBOTINOL [Concomitant]
     Active Substance: CARBOPLATIN
     Indication: OVARIAN CANCER
     Route: 041
     Dates: start: 2018
  2. UNITAXEL [Suspect]
     Active Substance: PACLITAXEL
     Indication: OVARIAN CANCER
     Route: 041
     Dates: start: 2018

REACTIONS (3)
  - Cardiotoxicity [Unknown]
  - Hypersensitivity [Recovered/Resolved]
  - Chest pain [Recovered/Resolved]

NARRATIVE: CASE EVENT DATE: 20180304
